FAERS Safety Report 8608590-X (Version None)
Quarter: 2012Q3

REPORT INFORMATION
  Report Type: 
  Country: None (occurrence: None)
  Receive Date: 20120806
  Receipt Date: 20120724
  Transmission Date: 20120928
  Serious: Yes (Death, Hospitalization)
  Sender: FDA-Public Use
  Company Number: DSA_58718_2012

PATIENT
  Age: 59 Year
  Sex: Female

DRUGS (3)
  1. LEUCOVORIN CALCIUM [Concomitant]
  2. FLUOROURACIL [Suspect]
     Indication: RECTAL CANCER
     Dosage: (DF)
  3. OXALIPLATIN [Concomitant]

REACTIONS (4)
  - BLOOD UREA INCREASED [None]
  - AMMONIA INCREASED [None]
  - HYPERAMMONAEMIC ENCEPHALOPATHY [None]
  - COMA [None]
